FAERS Safety Report 24954191 (Version 1)
Quarter: 2025Q1

REPORT INFORMATION
  Report Type: Spontaneous
  Country: CA (occurrence: CA)
  Receive Date: 20250211
  Receipt Date: 20250211
  Transmission Date: 20250409
  Serious: Yes (Death, Hospitalization)
  Sender: TAKEDA
  Company Number: CA-TAKEDA-2025TUS014595

PATIENT
  Age: 42 Year
  Sex: Female

DRUGS (1)
  1. PONATINIB [Suspect]
     Active Substance: PONATINIB
     Indication: Product used for unknown indication

REACTIONS (3)
  - Ventricular fibrillation [Fatal]
  - Cardiac arrest [Fatal]
  - Arrhythmia [Fatal]
